FAERS Safety Report 4686679-8 (Version None)
Quarter: 2005Q2

REPORT INFORMATION
  Report Type: 
  Country: None (occurrence: None)
  Receive Date: 20050608
  Receipt Date: 20050530
  Transmission Date: 20051028
  Serious: Yes (Hospitalization)
  Sender: FDA-Public Use
  Company Number: 106762ISR

PATIENT
  Age: 69 Year
  Sex: Female

DRUGS (3)
  1. METHOTREXATE [Suspect]
     Indication: RHEUMATOID ARTHRITIS
     Dosage: 15 MILLIGRAM QW, INTRAMUSCULAR
     Route: 030
     Dates: start: 19940101, end: 20050508
  2. REMICADE [Suspect]
     Indication: RHEUMATOID ARTHRITIS
     Dosage: INTRAVENOUS NOS
     Route: 042
     Dates: start: 20001107, end: 20050412
  3. DEFLAZACORT [Concomitant]

REACTIONS (1)
  - COLON CANCER [None]
